FAERS Safety Report 18168394 (Version 1)
Quarter: 2020Q3

REPORT INFORMATION
  Report Type: Spontaneous
  Country: GB (occurrence: GB)
  Receive Date: 20200818
  Receipt Date: 20200818
  Transmission Date: 20201103
  Serious: Yes (Other)
  Sender: FDA-Public Use
  Company Number: GB-ASCEND THERAPEUTICS US, LLC-2088758

PATIENT
  Age: 64 Year
  Sex: Female
  Weight: 68 kg

DRUGS (3)
  1. ESTROGEL [Suspect]
     Active Substance: ESTRADIOL
  2. OESTRODOSE (ESTRADIOL)?INDICATION FOR USE: MENOPAUSAL [Suspect]
     Active Substance: ESTRADIOL
     Route: 065
     Dates: start: 20200525, end: 20200531
  3. ESTROGEL [Suspect]
     Active Substance: ESTRADIOL
     Indication: MENOPAUSE
     Route: 065
     Dates: start: 20200525, end: 20200531

REACTIONS (8)
  - Menopausal symptoms [Recovering/Resolving]
  - Menopausal symptoms [Recovered/Resolved]
  - Depressed mood [Unknown]
  - Tinnitus [Unknown]
  - Product substitution issue [Unknown]
  - Panic reaction [Unknown]
  - Arthralgia [Unknown]
  - Night sweats [Unknown]

NARRATIVE: CASE EVENT DATE: 20200526
